FAERS Safety Report 25638365 (Version 1)
Quarter: 2025Q3

REPORT INFORMATION
  Report Type: Spontaneous
  Country: US (occurrence: US)
  Receive Date: 20250804
  Receipt Date: 20250804
  Transmission Date: 20251021
  Serious: No
  Sender: CHIESI
  Company Number: US-CHIESI-2025CHF02568

PATIENT
  Age: 60 Year
  Sex: Male

DRUGS (3)
  1. KENGREAL [Suspect]
     Active Substance: CANGRELOR
     Indication: Angiogram cerebral
     Route: 065
     Dates: start: 20250409, end: 20250409
  2. KENGREAL [Suspect]
     Active Substance: CANGRELOR
     Indication: Thrombectomy
     Route: 065
     Dates: start: 20250409, end: 20250409
  3. KENGREAL [Suspect]
     Active Substance: CANGRELOR
     Indication: Off label use

REACTIONS (4)
  - Off label use [Recovered/Resolved]
  - Off label use [Recovered/Resolved]
  - Off label use [Recovered/Resolved]
  - Off label use [Recovered/Resolved]

NARRATIVE: CASE EVENT DATE: 20250409
